FAERS Safety Report 8943828 (Version 2)
Quarter: 2012Q4

REPORT INFORMATION
  Report Type: Report from Study
  Country: US (occurrence: US)
  Receive Date: 20121204
  Receipt Date: 20121214
  Transmission Date: 20130627
  Serious: Yes (Life-Threatening, Hospitalization, Other)
  Sender: FDA-Public Use
  Company Number: US-BRISTOL-MYERS SQUIBB COMPANY-17156217

PATIENT
  Age: 54 Year
  Sex: Male
  Weight: 92.36 kg

DRUGS (3)
  1. IPILIMUMAB [Suspect]
     Indication: MALIGNANT MELANOMA
     Dosage: Last dose :25 Oct2012
     Route: 042
     Dates: start: 20121004
  2. SOLU-CORTEF [Concomitant]
     Dosage: 1 Dose:10Nov12-2/day.50mg
25mg IV Twise a day:11Nov12.
     Route: 042
     Dates: start: 20121109
  3. SOLU-MEDROL [Concomitant]
     Dosage: 1 Dose.
     Dates: start: 20121109

REACTIONS (5)
  - Respiratory failure [Recovered/Resolved with Sequelae]
  - Renal failure acute [Recovered/Resolved with Sequelae]
  - Colitis [Recovered/Resolved with Sequelae]
  - Hyperthyroidism [Recovered/Resolved with Sequelae]
  - Convulsion [Unknown]
